FAERS Safety Report 25591952 (Version 1)
Quarter: 2025Q3

REPORT INFORMATION
  Report Type: Spontaneous
  Country: CN (occurrence: CN)
  Receive Date: 20250722
  Receipt Date: 20250722
  Transmission Date: 20251020
  Serious: Yes (Other)
  Sender: NOVARTIS
  Company Number: CN-002147023-NVSC2025CN115241

PATIENT

DRUGS (2)
  1. CYCLOSPORINE [Suspect]
     Active Substance: CYCLOSPORINE
     Indication: Pemphigoid
     Route: 065
  2. RESLIZUMAB [Concomitant]
     Active Substance: RESLIZUMAB
     Indication: Pemphigoid
     Dosage: 3.5 MG/KG, QD (3.5MG/(KG?D))
     Route: 065

REACTIONS (3)
  - Pemphigoid [Unknown]
  - Condition aggravated [Unknown]
  - Off label use [Unknown]
